FAERS Safety Report 14860240 (Version 1)
Quarter: 2018Q2

REPORT INFORMATION
  Report Type: Spontaneous
  Country: US (occurrence: US)
  Receive Date: 20180423
  Receipt Date: 20180423
  Transmission Date: 20180711
  Serious: No
  Sender: FDA-Public Use
  Company Number: None

PATIENT
  Age: 38 Year
  Sex: Female
  Weight: 54.43 kg

DRUGS (1)
  1. MIRENA [Suspect]
     Active Substance: LEVONORGESTREL

REACTIONS (6)
  - Muscle spasms [None]
  - Diarrhoea [None]
  - Back pain [None]
  - Pruritus [None]
  - Abdominal pain [None]
  - Vaginal discharge [None]

NARRATIVE: CASE EVENT DATE: 20180101
